FAERS Safety Report 8800381 (Version 2)
Quarter: 2015Q2

REPORT INFORMATION
  Report Type: Report from Study
  Country: US (occurrence: US)
  Receive Date: 20120921
  Receipt Date: 20150401
  Transmission Date: 20150821
  Serious: Yes (Death)
  Sender: FDA-Public Use
  Company Number: US-ROCHE-1127046

PATIENT
  Sex: Female

DRUGS (21)
  1. LEVAQUIN [Concomitant]
     Active Substance: LEVOFLOXACIN
     Route: 048
  2. DEXAMETHASONE. [Concomitant]
     Active Substance: DEXAMETHASONE
     Route: 042
  3. IMITREX [Concomitant]
     Active Substance: SUMATRIPTAN\SUMATRIPTAN SUCCINATE
     Route: 048
  4. OXYCODON [Concomitant]
     Active Substance: OXYCODONE
     Route: 048
  5. COMPAZINE [Concomitant]
     Active Substance: PROCHLORPERAZINE MALEATE
     Route: 048
  6. PERIDEX (UNITED STATES) [Concomitant]
     Route: 048
  7. ACTIVASE [Concomitant]
     Active Substance: ALTEPLASE
     Route: 042
  8. PAMIDRONATE [Concomitant]
     Active Substance: PAMIDRONATE DISODIUM
     Route: 065
  9. KEFLEX [Concomitant]
     Active Substance: CEPHALEXIN
     Route: 042
  10. ATARAX [Concomitant]
     Active Substance: HYDROXYZINE\HYDROXYZINE HYDROCHLORIDE
     Route: 048
  11. NYSTATIN. [Concomitant]
     Active Substance: NYSTATIN
  12. NEXIUM [Concomitant]
     Active Substance: ESOMEPRAZOLE MAGNESIUM
     Route: 048
  13. DIPHENHYDRAMINE [Concomitant]
     Active Substance: DIPHENHYDRAMINE
  14. TAXOL [Suspect]
     Active Substance: PACLITAXEL
     Indication: BREAST CANCER
     Route: 042
  15. RANITIDINE [Concomitant]
     Active Substance: RANITIDINE\RANITIDINE HYDROCHLORIDE
     Route: 042
  16. HEPARIN [Concomitant]
     Active Substance: HEPARIN SODIUM
     Route: 042
  17. ASPIRIN. [Concomitant]
     Active Substance: ASPIRIN
     Route: 042
  18. LORTAB (UNITED STATES) [Concomitant]
     Dosage: 5-500 MG TAB 1 EVERY 6 HR
     Route: 048
  19. AVASTIN [Suspect]
     Active Substance: BEVACIZUMAB
     Indication: BREAST CANCER
     Route: 042
  20. ALBUTEROL. [Concomitant]
     Active Substance: ALBUTEROL
     Dosage: 2 PUFF EVERY 6 HR
     Route: 065
  21. AMBIEN [Concomitant]
     Active Substance: ZOLPIDEM TARTRATE
     Route: 048

REACTIONS (16)
  - Neutropenia [Unknown]
  - Bone marrow failure [Unknown]
  - Death [Fatal]
  - Urinary tract infection [Unknown]
  - Osteonecrosis of jaw [Recovered/Resolved]
  - Dyspnoea [Recovered/Resolved]
  - Chromaturia [Unknown]
  - Anaemia [Unknown]
  - Epistaxis [Recovered/Resolved]
  - Anal fissure [Recovering/Resolving]
  - Hepatic function abnormal [Unknown]
  - Fatigue [Unknown]
  - Cough [Unknown]
  - Thrombocytopenia [Unknown]
  - Respiratory tract infection [Unknown]
  - Onychoclasis [Unknown]
